FAERS Safety Report 21485505 (Version 1)
Quarter: 2022Q4

REPORT INFORMATION
  Report Type: Spontaneous
  Country: US (occurrence: US)
  Receive Date: 20221020
  Receipt Date: 20221020
  Transmission Date: 20230112
  Serious: Yes (Other)
  Sender: FDA-Public Use
  Company Number: US-Blueprint Medicines Corporation-496

PATIENT
  Sex: Female

DRUGS (1)
  1. AYVAKIT [Suspect]
     Active Substance: AVAPRITINIB
     Indication: Systemic mastocytosis
     Route: 065
     Dates: start: 20211215

REACTIONS (8)
  - Chronic kidney disease [Unknown]
  - Renal impairment [Unknown]
  - Hypertension [Unknown]
  - Weight increased [Unknown]
  - Back disorder [Unknown]
  - Monoparesis [Unknown]
  - Spinal osteoarthritis [Unknown]
  - Stenosis [Unknown]
